FAERS Safety Report 10412184 (Version 1)
Quarter: 2014Q3

REPORT INFORMATION
  Report Type: Spontaneous
  Country: US (occurrence: US)
  Receive Date: 20140827
  Receipt Date: 20140827
  Transmission Date: 20150326
  Serious: No
  Sender: FDA-Public Use
  Company Number: US-009507513-1408USA015476

PATIENT
  Sex: Female

DRUGS (1)
  1. PRIMAXIN IV [Suspect]
     Active Substance: CILASTATIN SODIUM\IMIPENEM
     Dosage: UNK
     Route: 042

REACTIONS (3)
  - Pyrexia [Recovered/Resolved]
  - Anxiety [Recovered/Resolved]
  - C-reactive protein increased [Recovered/Resolved]
